FAERS Safety Report 8043424-6 (Version None)
Quarter: 2012Q1

REPORT INFORMATION
  Report Type: 
  Country: None (occurrence: None)
  Receive Date: 20120112
  Receipt Date: 20120110
  Transmission Date: 20120608
  Serious: Yes (Life-Threatening, Hospitalization)
  Sender: FDA-Public Use
  Company Number: GXKR2012DE000521

PATIENT
  Sex: Female

DRUGS (2)
  1. DICLOFENAC SODIUM [Suspect]
     Route: 065
  2. TRAMADOL HCL [Suspect]
     Route: 065

REACTIONS (2)
  - COMA [None]
  - CIRCULATORY COLLAPSE [None]
